FAERS Safety Report 6013036-4 (Version None)
Quarter: 2008Q4

REPORT INFORMATION
  Report Type: 
  Country: None (occurrence: None)
  Receive Date: 20081217
  Receipt Date: 20080117
  Transmission Date: 20090506
  Serious: Yes (Hospitalization)
  Sender: FDA-Public Use
  Company Number: 2008US000247

PATIENT
  Age: 77 Year
  Sex: Female
  Weight: 72.6 kg

DRUGS (11)
  1. AMEVIVE [Suspect]
     Indication: PSORIASIS
     Dosage: 15 MG, WEEKLY, INTRAMUSCULSR
     Route: 030
     Dates: start: 20031126, end: 20040211
  2. GLUOPHAGE (METFORMIN HYDROCHLORIDE) [Concomitant]
  3. HUMULIN (INSULIN HUMAN INJECTION, ISOPHANE) [Concomitant]
  4. LASIX [Concomitant]
  5. SPIRONOLACTONE [Concomitant]
  6. PROTONIX [Concomitant]
  7. LANTUS [Concomitant]
  8. LIPITOR [Concomitant]
  9. AVAPRO [Concomitant]
  10. AMBIEN [Concomitant]
  11. COREG [Concomitant]

REACTIONS (2)
  - HALLUCINATION [None]
  - URINARY TRACT INFECTION [None]
